FAERS Safety Report 8576516-3 (Version None)
Quarter: 2012Q3

REPORT INFORMATION
  Report Type: 
  Country: None (occurrence: None)
  Receive Date: 20120807
  Receipt Date: 20120802
  Transmission Date: 20120928
  Serious: No
  Sender: FDA-Public Use
  Company Number: US-PFIZER INC-2012188351

PATIENT
  Age: 61 Year
  Sex: Male
  Weight: 103 kg

DRUGS (7)
  1. ATORVASTATIN CALCIUM [Suspect]
     Indication: BLOOD CHOLESTEROL INCREASED
     Dosage: UNK
     Dates: start: 20120101, end: 20120701
  2. ASPIRIN [Concomitant]
     Indication: HYPERTENSION
     Dosage: 81 MG, DAILY
  3. LANTUS [Concomitant]
     Indication: DIABETES MELLITUS
     Dosage: UNK,DAILY
  4. GLIMEPIRIDE [Concomitant]
     Indication: DIABETES MELLITUS
     Dosage: 2 MG, DAILY
  5. METFORMIN [Concomitant]
     Indication: DIABETES MELLITUS
     Dosage: TWO TABLETS OF 500 MG TWO TIMES A DAY
     Route: 048
  6. LISINOPRIL [Concomitant]
     Indication: HYPERTENSION
     Dosage: 20MG TWO TIMES A DAY
  7. METOPROLOL [Concomitant]
     Indication: HYPERTENSION
     Dosage: 50MG TWO TIMES A DAY

REACTIONS (3)
  - MUSCLE SPASMS [None]
  - MYALGIA [None]
  - ABDOMINAL DISCOMFORT [None]
